FAERS Safety Report 4570715-3 (Version None)
Quarter: 2005Q1

REPORT INFORMATION
  Report Type: 
  Country: None (occurrence: None)
  Receive Date: 20050202
  Receipt Date: 20050118
  Transmission Date: 20050727
  Serious: Yes (Death, Other)
  Sender: FDA-Public Use
  Company Number: 2005-SW-00001FI

PATIENT
  Age: 81 Year
  Sex: Male

DRUGS (5)
  1. ACTIVASE [Suspect]
     Indication: CEREBROVASCULAR ACCIDENT
     Dosage: 63 MG IV
     Route: 042
     Dates: start: 20041230, end: 20041230
  2. PERSANTINE [Suspect]
     Indication: CEREBROVASCULAR ACCIDENT PROPHYLAXIS
     Route: 048
  3. ORMPX               (ISOSORBIDE MONONITRATE) [Concomitant]
  4. NORVASC [Concomitant]
  5. PRIMASPAN      (ACETYLSALICYLIC ACID) [Concomitant]

REACTIONS (3)
  - HAEMORRHAGIC CEREBRAL INFARCTION [None]
  - HYDROCEPHALUS [None]
  - LOSS OF CONSCIOUSNESS [None]
